FAERS Safety Report 4714235-1 (Version None)
Quarter: 2005Q2

REPORT INFORMATION
  Report Type: 
  Country: None (occurrence: None)
  Receive Date: 20050630
  Receipt Date: 20050408
  Transmission Date: 20051028
  Serious: Yes (Hospitalization, Other)
  Sender: FDA-Public Use
  Company Number: US97011411A

PATIENT
  Age: 51 Year
  Sex: Female
  Weight: 56 kg

DRUGS (11)
  1. INSULIN [Suspect]
     Indication: DIABETES MELLITUS
     Dates: start: 19530101
  2. HUMULIN N [Suspect]
     Indication: DIABETES MELLITUS
  3. HUMULIN R [Suspect]
     Indication: DIABETES MELLITUS
  4. HUMULIN L [Suspect]
     Indication: DIABETES MELLITUS
  5. HUMULIN U [Suspect]
     Indication: DIABETES MELLITUS
  6. HUMALOG [Suspect]
     Indication: DIABETES MELLITUS
     Dosage: 17 U DAY
     Dates: start: 20020101
  7. AZMACORT [Concomitant]
  8. CAPTOPRIL [Concomitant]
  9. PREMARIN [Concomitant]
  10. BETOPTIC [Concomitant]
  11. LANTUS [Concomitant]

REACTIONS (7)
  - BLOOD GLUCOSE INCREASED [None]
  - EYE HAEMORRHAGE [None]
  - GLYCOSYLATED HAEMOGLOBIN INCREASED [None]
  - KETOACIDOSIS [None]
  - MALAISE [None]
  - VITRECTOMY [None]
  - VOMITING [None]
